FAERS Safety Report 24745430 (Version 3)
Quarter: 2025Q2

REPORT INFORMATION
  Report Type: Report from Study
  Country: CA (occurrence: CA)
  Receive Date: 20241217
  Receipt Date: 20250410
  Transmission Date: 20250716
  Serious: Yes (Hospitalization)
  Sender: JOHNSON AND JOHNSON
  Company Number: CA-JNJFOC-20241215707

PATIENT
  Age: 70 Year
  Sex: Male

DRUGS (2)
  1. STELARA [Suspect]
     Active Substance: USTEKINUMAB
     Indication: Crohn^s disease
     Route: 058
     Dates: start: 20170817
  2. STELARA [Suspect]
     Active Substance: USTEKINUMAB

REACTIONS (4)
  - Skin cancer [Unknown]
  - Renal transplant [Unknown]
  - Post procedural haemorrhage [Unknown]
  - Off label use [Unknown]

NARRATIVE: CASE EVENT DATE: 20250326
